FAERS Safety Report 7536926-X (Version None)
Quarter: 2011Q2

REPORT INFORMATION
  Report Type: 
  Country: None (occurrence: None)
  Receive Date: 20110609
  Receipt Date: 20110526
  Transmission Date: 20111010
  Serious: Yes (Hospitalization)
  Sender: FDA-Public Use
  Company Number: US-BAYER-201038257NA

PATIENT
  Age: 34 Year
  Sex: Female
  Weight: 91 kg

DRUGS (23)
  1. DARVOCET [Concomitant]
     Dosage: UNK UNK, PRN
  2. LEVAQUIN [Concomitant]
  3. I.V. SOLUTIONS [Concomitant]
  4. DROSPIRENONE AND ETHINYL ESTRADIOL [Suspect]
     Indication: ACNE
     Dosage: UNK
     Dates: start: 20050101, end: 20090101
  5. VICODIN [Concomitant]
  6. YAZ [Suspect]
     Indication: ACNE
  7. PRILOSEC [Concomitant]
     Indication: GASTROOESOPHAGEAL REFLUX DISEASE
  8. POTASSIUM CHLORIDE [Concomitant]
  9. MULTI-VITAMIN [Concomitant]
     Indication: VITAMIN SUPPLEMENTATION
  10. BLOOD PRESSURE MEDICATION (NOS) [Concomitant]
  11. ANTIBIOTICS [Concomitant]
  12. MOTRIN [Concomitant]
  13. WELCHOL [Concomitant]
     Indication: GASTROINTESTINAL DISORDER
     Dosage: UNK
  14. DEMEROL [Concomitant]
  15. HEPARIN [Concomitant]
  16. OVCON-35 [Concomitant]
     Route: 048
  17. YASMIN [Suspect]
     Indication: ACNE
     Dosage: UNK
     Dates: start: 20050101, end: 20090101
  18. YASMIN [Suspect]
     Indication: CONTRACEPTION
  19. DROSPIRENONE AND ETHINYL ESTRADIOL [Suspect]
     Indication: CONTRACEPTION
  20. PHENERGAN [Concomitant]
  21. LORTAB [Concomitant]
  22. IBUPROFEN (ADVIL) [Concomitant]
  23. DIURETICS [Concomitant]

REACTIONS (4)
  - CHOLELITHIASIS [None]
  - BILE DUCT STONE [None]
  - CHOLECYSTITIS CHRONIC [None]
  - ABDOMINAL PAIN UPPER [None]
